FAERS Safety Report 17123252 (Version 1)
Quarter: 2019Q4

REPORT INFORMATION
  Report Type: Spontaneous
  Country: US (occurrence: US)
  Receive Date: 20191206
  Receipt Date: 20191206
  Transmission Date: 20200122
  Serious: Yes (Other)
  Sender: FDA-Public Use
  Company Number: US-GW PHARMA-201912USGW4456

PATIENT

DRUGS (1)
  1. EPIDIOLEX [Suspect]
     Active Substance: CANNABIDIOL
     Indication: LENNOX-GASTAUT SYNDROME
     Dosage: 450 MILLIGRAM, QD (2 ML IN AM AND 2.5 ML IN PM)
     Route: 048
     Dates: start: 2019

REACTIONS (3)
  - Nasopharyngitis [Unknown]
  - Rhinorrhoea [Unknown]
  - Seizure [Unknown]

NARRATIVE: CASE EVENT DATE: 2019
